FAERS Safety Report 4301639-4 (Version None)
Quarter: 2004Q1

REPORT INFORMATION
  Report Type: 
  Country: None (occurrence: None)
  Receive Date: 20040219
  Receipt Date: 20040203
  Transmission Date: 20041129
  Serious: Yes (Hospitalization)
  Sender: FDA-Public Use
  Company Number: 190081

PATIENT
  Age: 52 Year
  Sex: Female

DRUGS (7)
  1. AVONEX [Suspect]
     Indication: MULTIPLE SCLEROSIS
     Dosage: 30 MCG QW IM
     Route: 030
     Dates: start: 20030512
  2. ARICEPT [Concomitant]
  3. ALLEGRA [Concomitant]
  4. ESTROVAN [Concomitant]
  5. TRAZODONE HCL [Concomitant]
  6. WELLBUTRIN [Concomitant]
  7. FLUOXETINE [Concomitant]

REACTIONS (6)
  - ACUTE STRESS DISORDER [None]
  - ASTHENIA [None]
  - CONFUSIONAL STATE [None]
  - DIZZINESS [None]
  - MULTIPLE SCLEROSIS [None]
  - TREMOR [None]
